FAERS Safety Report 8564628-X (Version None)
Quarter: 2012Q3

REPORT INFORMATION
  Report Type: 
  Country: None (occurrence: None)
  Receive Date: 20120727
  Receipt Date: 20120727
  Transmission Date: 20120928
  Serious: Yes (Life-Threatening)
  Sender: FDA-Public Use
  Company Number: None

PATIENT
  Age: 73 Year
  Sex: Female
  Weight: 98.2 kg

DRUGS (2)
  1. LOVENOX [Suspect]
     Indication: ANTICOAGULANT THERAPY
     Dosage: 100 MD EVERY 12 HOURS SQ
     Route: 058
     Dates: start: 20110325, end: 20110326
  2. LOVENOX [Suspect]
     Indication: POSTOPERATIVE CARE
     Dosage: 100 MD EVERY 12 HOURS SQ
     Route: 058
     Dates: start: 20110325, end: 20110326

REACTIONS (5)
  - BLOOD CREATININE INCREASED [None]
  - HAEMOGLOBIN DECREASED [None]
  - SUBCUTANEOUS EMPHYSEMA [None]
  - HYPOTENSION [None]
  - INAPPROPRIATE SCHEDULE OF DRUG ADMINISTRATION [None]
